FAERS Safety Report 8767492 (Version 1)
Quarter: 2012Q4

REPORT INFORMATION
  Report Type: 
  Country: US (occurrence: US)
  Receive Date: 20120904
  Receipt Date: 20120904
  Transmission Date: 20130627
  Serious: Yes (Other)
  Sender: FDA-Public Use
  Company Number: US-BAYER-2012-090877

PATIENT
  Age: 47 Year
  Sex: Female
  Weight: 61 kg

DRUGS (5)
  1. BAYER ADVANCED ASPIRIN EXTRA STRENGTH [Suspect]
     Indication: HEADACHE
     Dosage: 2 DF, ONCE
     Route: 048
     Dates: start: 20120821, end: 20120821
  2. TOPAMAX [Concomitant]
  3. ZOLOFT [Concomitant]
  4. AMITRIPTYLINE [Concomitant]
  5. SYNTHROID [Concomitant]

REACTIONS (6)
  - Throat irritation [Recovered/Resolved]
  - Foreign body [None]
  - Retching [Recovered/Resolved]
  - Pharyngeal oedema [Recovered/Resolved]
  - Gastrooesophageal reflux disease [Recovered/Resolved]
  - Eructation [Recovered/Resolved]
